FAERS Safety Report 4498282-3 (Version None)
Quarter: 2004Q3

REPORT INFORMATION
  Report Type: 
  Country: None (occurrence: None)
  Receive Date: 20040927
  Receipt Date: 20040611
  Transmission Date: 20050211
  Serious: No
  Sender: FDA-Public Use
  Company Number: USA040669973

PATIENT
  Age: 65 Year
  Sex: Male
  Weight: 84 kg

DRUGS (1)
  1. STRATTERA [Suspect]
     Dosage: 25 MG/1 DAY
     Dates: start: 20040609

REACTIONS (9)
  - APATHY [None]
  - ASTHENIA [None]
  - DECREASED APPETITE [None]
  - DEPRESSION [None]
  - DISORIENTATION [None]
  - DIZZINESS [None]
  - INSOMNIA [None]
  - LETHARGY [None]
  - NAUSEA [None]
